FAERS Safety Report 12701528 (Version 1)
Quarter: 2016Q3

REPORT INFORMATION
  Report Type: Spontaneous
  Country: US (occurrence: None)
  Receive Date: 20160830
  Receipt Date: 20160830
  Transmission Date: 20161109
  Serious: No
  Sender: FDA-Public Use
  Company Number: None

PATIENT
  Age: 66 Year
  Sex: Male

DRUGS (7)
  1. CARVEDILOL. [Suspect]
     Active Substance: CARVEDILOL
  2. FINASTERIDE. [Suspect]
     Active Substance: FINASTERIDE
  3. RISPERIDONE. [Suspect]
     Active Substance: RISPERIDONE
  4. TERAZOSIN [Suspect]
     Active Substance: TERAZOSIN\TERAZOSIN HYDROCHLORIDE
  5. TIMOLOL. [Suspect]
     Active Substance: TIMOLOL
  6. LISINOPRIL. [Suspect]
     Active Substance: LISINOPRIL
  7. HYDROCHLOROTIAZIDE [Suspect]
     Active Substance: HYDROCHLOROTHIAZIDE

REACTIONS (1)
  - Orthostatic hypotension [None]

NARRATIVE: CASE EVENT DATE: 20160825
